FAERS Safety Report 6910728-7 (Version None)
Quarter: 2010Q3

REPORT INFORMATION
  Report Type: 
  Country: None (occurrence: None)
  Receive Date: 20100806
  Receipt Date: 20100729
  Transmission Date: 20110219
  Serious: Yes (Other)
  Sender: FDA-Public Use
  Company Number: US-ROCHE-718589

PATIENT
  Sex: Male
  Weight: 81.6 kg

DRUGS (4)
  1. PEGASYS [Suspect]
     Indication: HEPATITIS C
     Route: 058
  2. COPEGUS [Suspect]
     Indication: HEPATITIS C
     Route: 048
  3. COPEGUS [Suspect]
     Dosage: DOSE REDUCED
     Route: 048
  4. PROCRIT [Concomitant]

REACTIONS (3)
  - ANAEMIA [None]
  - DEAFNESS [None]
  - TINNITUS [None]
